FAERS Safety Report 8852967 (Version 1)
Quarter: 2012Q4

REPORT INFORMATION
  Report Type: Report from Study
  Country: US (occurrence: US)
  Receive Date: 20121022
  Receipt Date: 20121022
  Transmission Date: 20130627
  Serious: Yes (Hospitalization)
  Sender: FDA-Public Use
  Company Number: US-009507513-1210USA007407

PATIENT
  Age: 16 Year
  Sex: Female
  Weight: 83.86 kg

DRUGS (4)
  1. ASENAPINE MALEATE-BIPOLAR DISORDER [Suspect]
     Indication: BIPOLAR I DISORDER
     Dosage: 5 mg, bid
     Route: 060
     Dates: start: 20120914, end: 20120921
  2. EPIDUO [Concomitant]
     Indication: ACNE
     Dosage: UNK, qam, 1 application
     Route: 061
     Dates: start: 201109
  3. LORAZEPAM [Concomitant]
     Indication: AGITATION
     Dosage: UNK, prn
     Route: 048
     Dates: start: 20120917, end: 20120918
  4. BENADRYL [Concomitant]
     Indication: INSOMNIA
     Dosage: 25 mg, UNK, qhs (as reported)
     Route: 048
     Dates: start: 20120920, end: 20120920

REACTIONS (1)
  - Mania [Recovering/Resolving]
